FAERS Safety Report 7212115-3 (Version None)
Quarter: 2011Q1

REPORT INFORMATION
  Report Type: 
  Country: None (occurrence: None)
  Receive Date: 20110106
  Receipt Date: 20101222
  Transmission Date: 20110831
  Serious: Yes (Other)
  Sender: FDA-Public Use
  Company Number: TW-RANBAXY-2010RR-40818

PATIENT
  Age: 58 Year
  Sex: Female

DRUGS (7)
  1. TRAZODONE [Suspect]
     Indication: MAJOR DEPRESSION
     Dosage: 50-125 MG/DAY
  2. ESCITALOPRAM [Suspect]
     Indication: MAJOR DEPRESSION
     Dosage: 10 MG, UNK
  3. MIRTAZAPINE [Suspect]
     Indication: MAJOR DEPRESSION
     Dosage: 15 MG, UNK
  4. PAROXETINE [Suspect]
     Indication: MAJOR DEPRESSION
     Dosage: 10-40 MG/DAY
  5. FLUOXETINE [Suspect]
     Indication: MAJOR DEPRESSION
     Dosage: 20-40 MG/DAY
  6. VENLAFAXINE [Suspect]
     Indication: MAJOR DEPRESSION
     Dosage: 37.5-225 MG/DAY
  7. DULOXETIME HYDROCHLORIDE [Suspect]
     Indication: MAJOR DEPRESSION
     Dosage: 30-60 MG/DAY
     Dates: start: 20070401

REACTIONS (2)
  - TARDIVE DYSKINESIA [None]
  - DYSTONIA [None]
